FAERS Safety Report 15148727 (Version 1)
Quarter: 2018Q3

REPORT INFORMATION
  Report Type: Spontaneous
  Country: US (occurrence: US)
  Receive Date: 20180716
  Receipt Date: 20180716
  Transmission Date: 20181010
  Serious: Yes (Other)
  Sender: FDA-Public Use
  Company Number: US-JNJFOC-20180713656

PATIENT
  Sex: Female
  Weight: 84.37 kg

DRUGS (4)
  1. REMICADE [Suspect]
     Active Substance: INFLIXIMAB
     Indication: CROHN^S DISEASE
     Dosage: 390 MG/VIAL/100 MG
     Route: 042
     Dates: start: 2016, end: 201710
  2. REMICADE [Suspect]
     Active Substance: INFLIXIMAB
     Indication: CROHN^S DISEASE
     Dosage: /100 MG
     Route: 042
     Dates: start: 2017, end: 201806
  3. REMICADE [Suspect]
     Active Substance: INFLIXIMAB
     Indication: CROHN^S DISEASE
     Dosage: /100 MG
     Route: 042
     Dates: start: 2018
  4. REMICADE [Suspect]
     Active Substance: INFLIXIMAB
     Indication: CROHN^S DISEASE
     Dosage: / 100 MG
     Route: 042
     Dates: start: 201710, end: 2017

REACTIONS (3)
  - Chronic obstructive pulmonary disease [Not Recovered/Not Resolved]
  - Benign renal neoplasm [Recovered/Resolved]
  - Pituitary tumour [Unknown]

NARRATIVE: CASE EVENT DATE: 2017
